FAERS Safety Report 9155047 (Version 1)
Quarter: 2013Q1

REPORT INFORMATION
  Report Type: Spontaneous
  Country: ES (occurrence: ES)
  Receive Date: 20130311
  Receipt Date: 20130311
  Transmission Date: 20140127
  Serious: Yes (Life-Threatening, Hospitalization)
  Sender: FDA-Public Use
  Company Number: ES-ASTRAZENECA-2013SE15267

PATIENT
  Age: 57 Year
  Sex: Male

DRUGS (10)
  1. ATACAND [Suspect]
     Indication: HYPERTENSION
     Route: 048
     Dates: start: 2007, end: 20120923
  2. CARDURAN NEO [Interacting]
     Indication: BENIGN PROSTATIC HYPERPLASIA
     Route: 048
     Dates: start: 20120922, end: 20120922
  3. LORAZEPAM [Concomitant]
     Indication: ALCOHOL WITHDRAWAL SYNDROME
     Dosage: AS REQUIRED
  4. BENEXOL B1-B6-B12 [Concomitant]
     Route: 048
  5. CELLCEPT [Concomitant]
     Indication: LIVER TRANSPLANT
     Route: 048
  6. INSULATARD [Concomitant]
     Indication: TYPE 2 DIABETES MELLITUS
     Dosage: 100 UI/ML, 1 VIAL 10 ML NEUTRAL SOLUBLE HUMAN INSULIN PRB, 18 IU BID
     Route: 058
     Dates: start: 2007
  7. KONAKION [Concomitant]
     Dosage: 10 MG/ML ORAL SOLUTION/SOLUTION FOR INJECTION, 5 AMPULE OF 1 ML FITOMENADION
     Route: 048
  8. SANDIMMUN NEORAL [Concomitant]
     Indication: LIVER TRANSPLANT
     Route: 048
  9. TRANXILIUM [Concomitant]
  10. URSOCHOL [Concomitant]
     Indication: BILIARY CIRRHOSIS
     Route: 048

REACTIONS (3)
  - Drug interaction [Unknown]
  - Orthostatic hypotension [Recovered/Resolved]
  - Presyncope [Unknown]
